FAERS Safety Report 20113671 (Version 11)
Quarter: 2022Q4

REPORT INFORMATION
  Report Type: Other
  Country: CA (occurrence: None)
  Receive Date: 20211125
  Receipt Date: 20221226
  Transmission Date: 20230112
  Serious: Yes (Other)
  Sender: FDA-Public Use
  Company Number: CA-ROCHE-1598789

PATIENT
  Sex: Female
  Weight: 70 kg

DRUGS (39)
  1. ACTEMRA [Suspect]
     Active Substance: TOCILIZUMAB
     Indication: Rheumatoid arthritis
     Route: 042
     Dates: start: 20141223, end: 20151110
  2. ACTEMRA [Suspect]
     Active Substance: TOCILIZUMAB
     Route: 042
     Dates: start: 20151217, end: 20151217
  3. ACTEMRA [Suspect]
     Active Substance: TOCILIZUMAB
     Route: 042
     Dates: start: 20160119, end: 20160303
  4. ACTEMRA [Suspect]
     Active Substance: TOCILIZUMAB
     Route: 042
     Dates: start: 20160407, end: 20160707
  5. ACTEMRA [Suspect]
     Active Substance: TOCILIZUMAB
     Route: 042
     Dates: start: 20160902, end: 20160902
  6. ACTEMRA [Suspect]
     Active Substance: TOCILIZUMAB
     Route: 042
     Dates: start: 20160930, end: 20161027
  7. ACTEMRA [Suspect]
     Active Substance: TOCILIZUMAB
     Route: 042
     Dates: start: 20170810
  8. ACTEMRA [Suspect]
     Active Substance: TOCILIZUMAB
     Route: 042
     Dates: start: 20170911
  9. ACTEMRA [Suspect]
     Active Substance: TOCILIZUMAB
     Route: 042
     Dates: start: 20161125
  10. ACTEMRA [Suspect]
     Active Substance: TOCILIZUMAB
     Route: 042
     Dates: start: 20180816
  11. ACTEMRA [Suspect]
     Active Substance: TOCILIZUMAB
     Route: 042
     Dates: start: 20190124, end: 20190604
  12. ACTEMRA [Suspect]
     Active Substance: TOCILIZUMAB
     Route: 042
     Dates: start: 20190910, end: 20190910
  13. ACTEMRA [Suspect]
     Active Substance: TOCILIZUMAB
     Route: 042
     Dates: start: 20191105, end: 20200303
  14. ACTEMRA [Suspect]
     Active Substance: TOCILIZUMAB
     Route: 042
     Dates: end: 20181213
  15. ACTEMRA [Suspect]
     Active Substance: TOCILIZUMAB
     Route: 042
     Dates: start: 20200423, end: 20200721
  16. ACTEMRA [Suspect]
     Active Substance: TOCILIZUMAB
     Route: 042
     Dates: start: 20200818, end: 20200818
  17. ACTEMRA [Suspect]
     Active Substance: TOCILIZUMAB
     Route: 042
     Dates: start: 20200915, end: 20221025
  18. ACTEMRA [Suspect]
     Active Substance: TOCILIZUMAB
     Route: 042
     Dates: start: 20200423
  19. ACTEMRA [Suspect]
     Active Substance: TOCILIZUMAB
     Dosage: ONGOING
     Route: 042
     Dates: start: 20221222
  20. METHOTREXATE [Suspect]
     Active Substance: METHOTREXATE
     Indication: Product used for unknown indication
     Route: 065
  21. QUETIAPINE [Concomitant]
     Active Substance: QUETIAPINE
  22. CELEBREX [Concomitant]
     Active Substance: CELECOXIB
  23. CLONAZEPAM [Concomitant]
     Active Substance: CLONAZEPAM
  24. AMITRIPTYLINE [Concomitant]
     Active Substance: AMITRIPTYLINE
  25. FERROUS SULFATE [Concomitant]
     Active Substance: FERROUS SULFATE
  26. TYLENOL [Concomitant]
     Active Substance: ACETAMINOPHEN
  27. LORAZEPAM [Concomitant]
     Active Substance: LORAZEPAM
  28. TELMISARTAN [Concomitant]
     Active Substance: TELMISARTAN
  29. PANTOPRAZOLE SODIUM [Concomitant]
     Active Substance: PANTOPRAZOLE SODIUM
  30. VENLAFAXINE [Concomitant]
     Active Substance: VENLAFAXINE HYDROCHLORIDE
  31. ALENDRONATE [Concomitant]
     Active Substance: ALENDRONATE SODIUM
  32. PREDNISONE [Concomitant]
     Active Substance: PREDNISONE
  33. FOLIC ACID [Concomitant]
     Active Substance: FOLIC ACID
  34. ACETAMINOPHEN [Concomitant]
     Active Substance: ACETAMINOPHEN
     Indication: Premedication
     Route: 065
  35. ADVAIR HFA [Concomitant]
     Active Substance: FLUTICASONE PROPIONATE\SALMETEROL XINAFOATE
  36. EFFEXOR [Concomitant]
     Active Substance: VENLAFAXINE HYDROCHLORIDE
  37. PANTOPRAZOLE [Concomitant]
     Active Substance: PANTOPRAZOLE
  38. SPIRIVA [Concomitant]
     Active Substance: TIOTROPIUM BROMIDE MONOHYDRATE
  39. VENTOLIN [Concomitant]
     Active Substance: ALBUTEROL SULFATE

REACTIONS (35)
  - Pain [Not Recovered/Not Resolved]
  - Wrist fracture [Not Recovered/Not Resolved]
  - Head injury [Not Recovered/Not Resolved]
  - Pancytopenia [Recovered/Resolved]
  - Fall [Unknown]
  - Arthritis [Recovered/Resolved]
  - Weight increased [Recovered/Resolved]
  - Arthralgia [Unknown]
  - Gait inability [Unknown]
  - Blood pressure increased [Unknown]
  - Joint swelling [Not Recovered/Not Resolved]
  - Erythema [Not Recovered/Not Resolved]
  - Pain in extremity [Not Recovered/Not Resolved]
  - Nail injury [Not Recovered/Not Resolved]
  - Joint stiffness [Not Recovered/Not Resolved]
  - Blood pressure systolic increased [Unknown]
  - Injection site reaction [Recovered/Resolved]
  - Malaise [Unknown]
  - Dyspepsia [Unknown]
  - Nausea [Unknown]
  - Erythema [Recovering/Resolving]
  - Disability assessment scale score increased [Not Recovered/Not Resolved]
  - Weight decreased [Unknown]
  - Urinary incontinence [Unknown]
  - Pain [Not Recovered/Not Resolved]
  - Blood pressure systolic increased [Unknown]
  - Ear haemorrhage [Unknown]
  - Cystitis [Unknown]
  - Blood pressure systolic abnormal [Unknown]
  - Blood pressure diastolic abnormal [Unknown]
  - Oxygen saturation decreased [Unknown]
  - Dementia [Not Recovered/Not Resolved]
  - Insomnia [Unknown]
  - Confusional state [Unknown]
  - Body temperature increased [Unknown]

NARRATIVE: CASE EVENT DATE: 20150101
